FAERS Safety Report 16131957 (Version 1)
Quarter: 2019Q1

REPORT INFORMATION
  Report Type: Spontaneous
  Country: US (occurrence: US)
  Receive Date: 20190225
  Receipt Date: 20190225
  Transmission Date: 20190418
  Serious: No
  Sender: FDA-Public Use
  Company Number: None

PATIENT
  Age: 45 Year
  Sex: Female

DRUGS (1)
  1. MYCOPHENOLATE MOF TAB 500MG [Suspect]
     Active Substance: MYCOPHENOLATE MOFETIL
     Dates: start: 201806

REACTIONS (5)
  - Pain [None]
  - Rash [None]
  - Therapy cessation [None]
  - Erythema [None]
  - Therapeutic response decreased [None]

NARRATIVE: CASE EVENT DATE: 20190218
